FAERS Safety Report 10530212 (Version 1)
Quarter: 2014Q4

REPORT INFORMATION
  Report Type: Spontaneous
  Country: US (occurrence: None)
  Receive Date: 20141020
  Receipt Date: 20141020
  Transmission Date: 20150528
  Serious: Yes (Hospitalization, Other)
  Sender: FDA-Public Use
  Company Number: None

PATIENT
  Age: 52 Year

DRUGS (1)
  1. OXCARBAZEPINE. [Suspect]
     Active Substance: OXCARBAZEPINE
     Indication: MENTAL DISABILITY
     Dosage: 1 TABLET  TWICE DAILY TAKEN BY MOUTH
     Route: 048
     Dates: start: 20141019

REACTIONS (5)
  - Dystonia [None]
  - Speech disorder [None]
  - Palpitations [None]
  - Mobility decreased [None]
  - Product quality issue [None]

NARRATIVE: CASE EVENT DATE: 20141019
